FAERS Safety Report 10192169 (Version 1)
Quarter: 2014Q2

REPORT INFORMATION
  Report Type: Spontaneous
  Country: FR (occurrence: None)
  Receive Date: 20140521
  Receipt Date: 20140521
  Transmission Date: 20141212
  Serious: Yes (Other)
  Sender: FDA-Public Use
  Company Number: FR-SEPTODONT-198501915

PATIENT
  Sex: Male

DRUGS (2)
  1. MEPIVACAINE HYDROCHLORIDE [Suspect]
     Indication: LOCAL ANAESTHESIA
     Route: 004
     Dates: start: 1985
  2. ALVOCARDYL [Concomitant]

REACTIONS (5)
  - Salivary hypersecretion [None]
  - Convulsion [None]
  - Nervous system disorder [None]
  - Confusional state [None]
  - Aggression [None]
